FAERS Safety Report 5025800-9 (Version None)
Quarter: 2006Q2

REPORT INFORMATION
  Report Type: 
  Country: None (occurrence: None)
  Receive Date: 20060608
  Receipt Date: 20060608
  Transmission Date: 20061013
  Serious: Yes (Life-Threatening, Hospitalization, Disabling)
  Sender: FDA-Public Use
  Company Number: None

PATIENT
  Age: 75 Year
  Sex: Male
  Weight: 83.4619 kg

DRUGS (3)
  1. FLEET 1 PREP KIT [Suspect]
     Indication: UROGRAM
     Dosage: ENTIRE PRODUCT 24 HR PERIOD  MOUTH ANAL
     Route: 048
     Dates: start: 20060427
  2. FLEET 1 PREP KIT [Suspect]
     Indication: UROGRAM
     Dosage: ENTIRE PRODUCT 24 HR PERIOD  MOUTH ANAL
     Route: 048
     Dates: start: 20060428
  3. FLEET 1 PREP KIT [Suspect]
     Dosage: SUPPOSITORY ANUS
     Route: 054

REACTIONS (13)
  - DIARRHOEA [None]
  - EXCORIATION [None]
  - EYE SWELLING [None]
  - FALL [None]
  - HEAD INJURY [None]
  - INJURY [None]
  - JOINT DISLOCATION [None]
  - LACERATION [None]
  - LOSS OF CONSCIOUSNESS [None]
  - PAIN [None]
  - PERIORBITAL HAEMATOMA [None]
  - PHARMACEUTICAL PRODUCT COMPLAINT [None]
  - SYNCOPE [None]
